FAERS Safety Report 19047415 (Version 3)
Quarter: 2021Q2

REPORT INFORMATION
  Report Type: Spontaneous
  Country: CA (occurrence: CA)
  Receive Date: 20210323
  Receipt Date: 20210429
  Transmission Date: 20210717
  Serious: Yes (Other)
  Sender: FDA-Public Use
  Company Number: CA-BAUSCH-BL-2021-008419

PATIENT
  Age: 65 Year
  Sex: Female
  Weight: 98.97 kg

DRUGS (6)
  1. ATACAND [Concomitant]
     Active Substance: CANDESARTAN CILEXETIL
     Indication: PRODUCT USED FOR UNKNOWN INDICATION
     Route: 048
  2. IMURAN [Concomitant]
     Active Substance: AZATHIOPRINE
     Indication: PRODUCT USED FOR UNKNOWN INDICATION
     Route: 048
  3. MESTINON [Suspect]
     Active Substance: PYRIDOSTIGMINE BROMIDE
     Indication: MYASTHENIA GRAVIS
     Route: 048
     Dates: start: 202102
  4. PREDNISON [Concomitant]
     Active Substance: PREDNISONE
     Indication: PRODUCT USED FOR UNKNOWN INDICATION
     Dosage: EMP (AS DIRECTED)
     Route: 048
  5. APO?OMEPRAZOLE [Concomitant]
     Active Substance: OMEPRAZOLE
     Indication: PRODUCT USED FOR UNKNOWN INDICATION
     Route: 048
  6. MESTINON [Suspect]
     Active Substance: PYRIDOSTIGMINE BROMIDE
     Indication: MYASTHENIA GRAVIS
     Dosage: STARTED ABOUT 30 YEARS AGO
     Route: 048

REACTIONS (8)
  - Tinnitus [Recovered/Resolved]
  - Myasthenia gravis [Recovered/Resolved]
  - Product quality issue [Unknown]
  - Product solubility abnormal [Unknown]
  - Product colour issue [Unknown]
  - Hypertension [Recovered/Resolved]
  - Gastric disorder [Recovered/Resolved]
  - Head discomfort [Recovered/Resolved]
